FAERS Safety Report 25646298 (Version 2)
Quarter: 2025Q3

REPORT INFORMATION
  Report Type: Spontaneous
  Country: GB (occurrence: GB)
  Receive Date: 20250805
  Receipt Date: 20250808
  Transmission Date: 20251020
  Serious: Yes (Hospitalization, Other)
  Sender: PFIZER
  Company Number: GB-TAKEDA-2025TUS068961

PATIENT
  Age: 32 Year
  Sex: Male

DRUGS (4)
  1. ADCETRIS [Suspect]
     Active Substance: BRENTUXIMAB VEDOTIN
     Route: 065
  2. DOXORUBICIN [Suspect]
     Active Substance: DOXORUBICIN
     Route: 065
  3. VINBLASTINE [Suspect]
     Active Substance: VINBLASTINE
     Route: 065
  4. DACARBAZINE [Suspect]
     Active Substance: DACARBAZINE
     Route: 065

REACTIONS (4)
  - Pain in jaw [Unknown]
  - Neutropenic sepsis [Unknown]
  - Constipation [Unknown]
  - Neuropathy peripheral [Unknown]
